FAERS Safety Report 20874066 (Version 1)
Quarter: 2022Q2

REPORT INFORMATION
  Report Type: Spontaneous
  Country: US (occurrence: US)
  Receive Date: 20220525
  Receipt Date: 20220525
  Transmission Date: 20220721
  Serious: No
  Sender: FDA-Public Use
  Company Number: US-SUNOVION-2022SUN001613

PATIENT
  Sex: Female

DRUGS (3)
  1. LATUDA [Suspect]
     Active Substance: LURASIDONE HYDROCHLORIDE
     Indication: Schizophrenia
     Dosage: 40 MG, QD (MORNING)
     Route: 048
     Dates: start: 20220511
  2. RISPERDAL [Suspect]
     Active Substance: RISPERIDONE
     Dosage: 6 MG (2MG IN THE MORNING AND 4MG HS)
     Route: 065
  3. RISPERDAL [Suspect]
     Active Substance: RISPERIDONE
     Dosage: 4 MG, HS
     Route: 065

REACTIONS (4)
  - Somnolence [Unknown]
  - Weight increased [Unknown]
  - Fatigue [Unknown]
  - Product administration error [Unknown]
